FAERS Safety Report 6449834-2 (Version None)
Quarter: 2009Q4

REPORT INFORMATION
  Report Type: 
  Country: None (occurrence: None)
  Receive Date: 20091120
  Receipt Date: 20091113
  Transmission Date: 20100525
  Serious: Yes (Hospitalization)
  Sender: FDA-Public Use
  Company Number: US-GENENTECH-294346

PATIENT
  Sex: Female

DRUGS (3)
  1. BEVACIZUMAB [Suspect]
     Indication: CERVIX CARCINOMA
     Dosage: 15 MG, UNK
     Route: 042
     Dates: start: 20090415
  2. CISPLATIN [Suspect]
     Indication: CERVIX CARCINOMA
     Dosage: 50 MG/M2, UNK
     Route: 042
     Dates: start: 20090415
  3. TOPOTECAN [Suspect]
     Indication: CERVIX CARCINOMA
     Dosage: 0.75 MG/M2, UNK
     Route: 042
     Dates: start: 20090415

REACTIONS (6)
  - ABDOMINAL PAIN [None]
  - BLADDER PERFORATION [None]
  - BLOOD CALCIUM DECREASED [None]
  - HAEMATURIA [None]
  - HAEMOGLOBIN DECREASED [None]
  - PLATELET COUNT DECREASED [None]
